FAERS Safety Report 17210961 (Version 2)
Quarter: 2020Q2

REPORT INFORMATION
  Report Type: Report from Study
  Country: DE (occurrence: DE)
  Receive Date: 20191227
  Receipt Date: 20200602
  Transmission Date: 20200713
  Serious: Yes (Other)
  Sender: FDA-Public Use
  Company Number: DE-BIOMARINP-002006

PATIENT
  Age: 16 Year
  Sex: Female
  Weight: 37.5 kg

DRUGS (3)
  1. PARACETAMOL [Concomitant]
     Active Substance: ACETAMINOPHEN
     Indication: PREMEDICATION
  2. NAGLAZYME [Suspect]
     Active Substance: GALSULFASE
     Indication: MUCOPOLYSACCHARIDOSIS VI
     Dosage: 1MG/KG,QW
     Route: 041
     Dates: start: 20050827
  3. FENISTIL [Concomitant]
     Active Substance: DIMETHINDENE
     Indication: PREMEDICATION

REACTIONS (1)
  - Cervical cord compression [Recovering/Resolving]

NARRATIVE: CASE EVENT DATE: 20090703
